FAERS Safety Report 8368070-6 (Version None)
Quarter: 2012Q2

REPORT INFORMATION
  Report Type: 
  Country: None (occurrence: None)
  Receive Date: 20120517
  Receipt Date: 20120508
  Transmission Date: 20120825
  Serious: Yes (Other)
  Sender: FDA-Public Use
  Company Number: US-PFIZER INC-2012112708

PATIENT
  Sex: Male
  Weight: 78.005 kg

DRUGS (2)
  1. TAMSULOSIN [Concomitant]
     Indication: HYPERTONIC BLADDER
     Dosage: UNK
  2. TOVIAZ [Suspect]
     Indication: HYPERTONIC BLADDER
     Dosage: 4 MG, 1X/DAY
     Route: 048
     Dates: start: 20120401

REACTIONS (1)
  - VISUAL ACUITY REDUCED [None]
